FAERS Safety Report 25514898 (Version 1)
Quarter: 2025Q3

REPORT INFORMATION
  Report Type: Spontaneous
  Country: US (occurrence: US)
  Receive Date: 20250703
  Receipt Date: 20250703
  Transmission Date: 20251020
  Serious: No
  Sender: RADIUS PHARM
  Company Number: US-RADIUS HEALTH INC.-2024US001180

PATIENT
  Sex: Female
  Weight: 57.596 kg

DRUGS (2)
  1. TYMLOS [Suspect]
     Active Substance: ABALOPARATIDE
     Indication: Product used for unknown indication
     Route: 065
  2. TYMLOS [Suspect]
     Active Substance: ABALOPARATIDE
     Route: 065

REACTIONS (11)
  - Palpitations [Recovering/Resolving]
  - Back pain [Recovered/Resolved]
  - Condition aggravated [Unknown]
  - Weight increased [Unknown]
  - Insomnia [Recovering/Resolving]
  - Gastrooesophageal reflux disease [Recovering/Resolving]
  - Hypertension [Recovering/Resolving]
  - Arthralgia [Recovering/Resolving]
  - Intentional product misuse [Not Recovered/Not Resolved]
  - Neck pain [Unknown]
  - Abdominal distension [Unknown]
